FAERS Safety Report 22340134 (Version 1)
Quarter: 2023Q2

REPORT INFORMATION
  Report Type: Spontaneous
  Country: US (occurrence: None)
  Receive Date: 20230517
  Receipt Date: 20230517
  Transmission Date: 20230722
  Serious: Yes (Hospitalization)
  Sender: FDA-Public Use
  Company Number: None

PATIENT
  Age: 64 Year
  Sex: Male
  Weight: 81.8 kg

DRUGS (2)
  1. NIVOLUMAB [Suspect]
     Active Substance: NIVOLUMAB
     Dosage: OTHER FREQUENCY : Q14 DAYS;?
     Route: 042
     Dates: start: 20220810
  2. IPILIMUMAB [Suspect]
     Active Substance: IPILIMUMAB
     Dosage: OTHER QUANTITY : 1MG/KG;?OTHER FREQUENCY : Q8 WEEKS;?
     Route: 042
     Dates: start: 20220810

REACTIONS (2)
  - Tachycardia [None]
  - Dehydration [None]

NARRATIVE: CASE EVENT DATE: 20230516
